FAERS Safety Report 22146140 (Version 2)
Quarter: 2023Q1

REPORT INFORMATION
  Report Type: Spontaneous
  Country: FR (occurrence: FR)
  Receive Date: 20230328
  Receipt Date: 20230331
  Transmission Date: 20230417
  Serious: Yes (Death, Other)
  Sender: FDA-Public Use
  Company Number: FR-Merz Pharmaceuticals GmbH-23-00883

PATIENT
  Age: 80 Year
  Sex: Male

DRUGS (13)
  1. XEOMIN [Suspect]
     Active Substance: INCOBOTULINUMTOXINA
     Indication: Salivary hypersecretion
     Dates: start: 20230314, end: 20230314
  2. XEOMIN [Suspect]
     Active Substance: INCOBOTULINUMTOXINA
  3. XEOMIN [Suspect]
     Active Substance: INCOBOTULINUMTOXINA
  4. XEOMIN [Suspect]
     Active Substance: INCOBOTULINUMTOXINA
     Dates: start: 20221215, end: 20221215
  5. KARDEGIC [Concomitant]
     Active Substance: ASPIRIN DL-LYSINE
     Dosage: 160 MG
  6. Tahors [Concomitant]
     Dosage: 20 MG
  7. DAFALGAN [Concomitant]
     Active Substance: ACETAMINOPHEN
  8. CARBIDOPA\LEVODOPA [Concomitant]
     Active Substance: CARBIDOPA\LEVODOPA
  9. AMLODIPINE BESYLATE [Concomitant]
     Active Substance: AMLODIPINE BESYLATE
     Dosage: 5 MG
  10. COVID-19 VACCINE [Concomitant]
  11. COVID-19 VACCINE [Concomitant]
  12. COVID-19 VACCINE [Concomitant]
  13. COVID-19 VACCINE [Concomitant]

REACTIONS (9)
  - Aspiration [Fatal]
  - Choking [Recovered/Resolved]
  - Cardio-respiratory arrest [Fatal]
  - Fatigue [Unknown]
  - Asthenia [Unknown]
  - Condition aggravated [Unknown]
  - Fall [Unknown]
  - Drug ineffective [Unknown]
  - Off label use [Unknown]

NARRATIVE: CASE EVENT DATE: 20230301
